FAERS Safety Report 10640118 (Version 1)
Quarter: 2014Q4

REPORT INFORMATION
  Report Type: Spontaneous
  Country: US (occurrence: US)
  Receive Date: 20141209
  Receipt Date: 20141209
  Transmission Date: 20150529
  Serious: Yes (Other)
  Sender: FDA-Public Use
  Company Number: US-INCYTE CORPORATION-2014IN003639

PATIENT
  Sex: Male

DRUGS (9)
  1. SYMBICORT [Concomitant]
     Active Substance: BUDESONIDE\FORMOTEROL FUMARATE DIHYDRATE
  2. JAKAFI [Suspect]
     Active Substance: RUXOLITINIB
     Indication: MYELOFIBROSIS
     Dosage: 20 MG, BID
     Route: 048
     Dates: start: 201209
  3. NORVASC [Concomitant]
     Active Substance: AMLODIPINE BESYLATE
  4. MEGACE [Concomitant]
     Active Substance: MEGESTROL ACETATE
  5. LISINOPRIL. [Concomitant]
     Active Substance: LISINOPRIL
  6. ENABLEX [Concomitant]
     Active Substance: DARIFENACIN\DARIFENACIN HYDROBROMIDE
  7. ALDACTONE [Concomitant]
     Active Substance: SPIRONOLACTONE
  8. AVODART [Concomitant]
     Active Substance: DUTASTERIDE
  9. FLOMAX [Concomitant]
     Active Substance: TAMSULOSIN HYDROCHLORIDE

REACTIONS (2)
  - Skin cancer [Unknown]
  - Urinary tract infection [Unknown]
